FAERS Safety Report 10038398 (Version 2)
Quarter: 2014Q2

REPORT INFORMATION
  Report Type: Spontaneous
  Country: US (occurrence: US)
  Receive Date: 20140326
  Receipt Date: 20140603
  Transmission Date: 20141212
  Serious: Yes (Other)
  Sender: FDA-Public Use
  Company Number: US-FRI-1000065763

PATIENT
  Age: 27 Year
  Sex: Female

DRUGS (4)
  1. LINZESS [Suspect]
     Indication: IRRITABLE BOWEL SYNDROME
     Dosage: 145MCG
     Route: 048
     Dates: start: 20140224, end: 20140307
  2. SYNTHROID [Concomitant]
     Indication: HYPOTHYROIDISM
     Dosage: 50MCG
  3. PREVACID [Concomitant]
     Indication: DYSPEPSIA
     Dosage: 30MG
  4. ORTHO TRI-CYCLEN [Concomitant]
     Indication: CONTRACEPTION

REACTIONS (6)
  - Gastrointestinal haemorrhage [Recovered/Resolved]
  - Colitis [Unknown]
  - Enteritis [Unknown]
  - Chronic gastritis [Unknown]
  - Diarrhoea [Recovered/Resolved]
  - Fatigue [Unknown]
